FAERS Safety Report 6135864-7 (Version None)
Quarter: 2009Q1

REPORT INFORMATION
  Report Type: 
  Country: None (occurrence: None)
  Receive Date: 20090327
  Receipt Date: 20090312
  Transmission Date: 20090719
  Serious: Yes (Death)
  Sender: FDA-Public Use
  Company Number: AU-GENENTECH-223566

PATIENT
  Sex: Male
  Weight: 74 kg

DRUGS (11)
  1. BEVACIZUMAB [Suspect]
     Indication: COLON CANCER
     Dosage: 560 MG, Q3W
     Route: 042
     Dates: start: 20050704, end: 20060314
  2. OXALIPLATIN [Suspect]
     Indication: COLON CANCER
     Dosage: 165 MG, Q2W
     Route: 042
     Dates: start: 20050704, end: 20051228
  3. FOLINIC ACID [Suspect]
     Indication: COLON CANCER
     Dosage: 390 MG, Q2W
     Route: 042
     Dates: start: 20050704, end: 20051228
  4. FLUOROURACIL [Suspect]
     Indication: COLON CANCER
     Dosage: 580 MG, Q2W
     Route: 040
     Dates: start: 20050704, end: 20051228
  5. FLUOROURACIL [Suspect]
     Dosage: 970 MG, Q2W
     Route: 042
  6. GEMFIBROZIL [Concomitant]
     Indication: DRUG USE FOR UNKNOWN INDICATION
  7. METFORMIN [Concomitant]
     Indication: DRUG USE FOR UNKNOWN INDICATION
  8. PARIET [Concomitant]
     Indication: OESOPHAGITIS
  9. MYLANTA [Concomitant]
     Indication: DYSPEPSIA
  10. LOPID [Concomitant]
     Indication: DRUG USE FOR UNKNOWN INDICATION
     Dates: start: 20030615
  11. DIAFORMIN [Concomitant]
     Indication: DRUG USE FOR UNKNOWN INDICATION
     Dates: start: 20050415

REACTIONS (1)
  - SUDDEN DEATH [None]
